FAERS Safety Report 6987898-8 (Version None)
Quarter: 2010Q3

REPORT INFORMATION
  Report Type: 
  Country: None (occurrence: None)
  Receive Date: 20100916
  Receipt Date: 20100817
  Transmission Date: 20110219
  Serious: No
  Sender: FDA-Public Use
  Company Number: US-ABBOTT-10P-163-0655080-00

PATIENT
  Sex: Male

DRUGS (6)
  1. TRILIPIX [Suspect]
     Indication: PRODUCT USED FOR UNKNOWN INDICATION
     Dates: start: 20091101, end: 20100101
  2. TRILIPIX [Suspect]
     Dates: start: 20100101, end: 20100101
  3. LISINOPRIL [Suspect]
     Indication: PRODUCT USED FOR UNKNOWN INDICATION
     Dates: start: 20090101, end: 20100101
  4. LISINOPRIL [Suspect]
     Dates: start: 20100101
  5. LIPITOR [Suspect]
     Indication: PRODUCT USED FOR UNKNOWN INDICATION
     Dates: start: 20100401
  6. LIPITOR [Suspect]
     Dates: start: 20100101

REACTIONS (3)
  - DIZZINESS [None]
  - DYSPNOEA [None]
  - PARAESTHESIA [None]
